FAERS Safety Report 4867020-4 (Version None)
Quarter: 2005Q4

REPORT INFORMATION
  Report Type: 
  Country: None (occurrence: None)
  Receive Date: 20051222
  Receipt Date: 20051214
  Transmission Date: 20060501
  Serious: Yes (Death, Life-Threatening, Hospitalization)
  Sender: FDA-Public Use
  Company Number: FR-2005-027149

PATIENT
  Age: 66 Year
  Sex: Female

DRUGS (7)
  1. SOTALOL HCL [Suspect]
     Dosage: 80 MG, 2X/DAY, ORAL
     Route: 048
     Dates: end: 20041116
  2. FOLIC ACID [Concomitant]
  3. SIMVASTATIN [Concomitant]
  4. LASILIX [Concomitant]
  5. FERROUS SULFATE TAB [Concomitant]
  6. EUCALCIC [Concomitant]
  7. CALCIPARINE [Concomitant]

REACTIONS (13)
  - ANGINA PECTORIS [None]
  - ARRHYTHMIA [None]
  - ATRIAL FIBRILLATION [None]
  - BLOOD CREATININE INCREASED [None]
  - DUODENAL ULCER [None]
  - ELECTROCARDIOGRAM REPOLARISATION ABNORMALITY [None]
  - HAEMODIALYSIS [None]
  - LOSS OF CONSCIOUSNESS [None]
  - MALAISE [None]
  - SINOATRIAL BLOCK [None]
  - SINUS ARRHYTHMIA [None]
  - TACHYCARDIA [None]
  - VENTRICULAR EXTRASYSTOLES [None]
